FAERS Safety Report 7485502-6 (Version None)
Quarter: 2011Q2

REPORT INFORMATION
  Report Type: 
  Country: None (occurrence: None)
  Receive Date: 20110516
  Receipt Date: 20110516
  Transmission Date: 20111010
  Serious: Yes (Other)
  Sender: FDA-Public Use
  Company Number: None

PATIENT
  Age: 50 Year
  Sex: Male
  Weight: 90.7194 kg

DRUGS (1)
  1. BUPROPION HCL [Suspect]
     Indication: DEPRESSION
     Dosage: 150MG QD PO
     Route: 048
     Dates: start: 20110402, end: 20110501

REACTIONS (3)
  - PRODUCT SUBSTITUTION ISSUE [None]
  - DEPRESSIVE SYMPTOM [None]
  - DRUG INEFFECTIVE [None]
